FAERS Safety Report 5735894-0 (Version None)
Quarter: 2008Q2

REPORT INFORMATION
  Report Type: 
  Country: None (occurrence: None)
  Receive Date: 20080509
  Receipt Date: 20080509
  Transmission Date: 20081010
  Serious: Yes (Disabling)
  Sender: FDA-Public Use
  Company Number: None

PATIENT
  Age: 38 Year
  Sex: Female
  Weight: 123.832 kg

DRUGS (1)
  1. TAXOTERE [Suspect]
     Indication: BREAST DISORDER
     Dosage: 150 MG 21 DAYS IV DRIP
     Route: 041
     Dates: start: 20080123, end: 20080123

REACTIONS (3)
  - CHEST DISCOMFORT [None]
  - DYSPNOEA [None]
  - FLUSHING [None]
